FAERS Safety Report 7592985-X (Version None)
Quarter: 2011Q3

REPORT INFORMATION
  Report Type: 
  Country: None (occurrence: None)
  Receive Date: 20110706
  Receipt Date: 20110614
  Transmission Date: 20111222
  Serious: Yes (Congenital Anomaly)
  Sender: FDA-Public Use
  Company Number: US-GLAXOSMITHKLINE-A0934959A

PATIENT
  Sex: Male

DRUGS (2)
  1. PROZAC [Concomitant]
     Route: 064
  2. PAXIL [Suspect]
     Indication: PRODUCT USED FOR UNKNOWN INDICATION
     Route: 064
     Dates: end: 20100308

REACTIONS (6)
  - SPINA BIFIDA [None]
  - HIP DYSPLASIA [None]
  - CONGENITAL MUSCULOSKELETAL ANOMALY [None]
  - MATERNAL EXPOSURE DURING PREGNANCY [None]
  - PYELOCALIECTASIS [None]
  - HYDROCEPHALUS [None]
